FAERS Safety Report 19757270 (Version 5)
Quarter: 2023Q2

REPORT INFORMATION
  Report Type: Spontaneous
  Country: JP (occurrence: JP)
  Receive Date: 20210827
  Receipt Date: 20230526
  Transmission Date: 20230722
  Serious: Yes (Death, Hospitalization, Other)
  Sender: FDA-Public Use
  Company Number: JP-NBI-J202116773BIPI

PATIENT
  Age: 84 Year
  Sex: Female
  Weight: 51.8 kg

DRUGS (5)
  1. IDARUCIZUMAB [Suspect]
     Active Substance: IDARUCIZUMAB
     Indication: Procoagulant therapy
     Route: 042
     Dates: start: 20210820, end: 20210820
  2. IDARUCIZUMAB [Suspect]
     Active Substance: IDARUCIZUMAB
     Route: 042
     Dates: start: 20210820, end: 20210820
  3. AMLODIPINE [Suspect]
     Active Substance: AMLODIPINE BESYLATE
     Indication: Hypertension
     Route: 048
  4. PILSICAINIDE HYDROCHLORIDE [Suspect]
     Active Substance: PILSICAINIDE HYDROCHLORIDE
     Indication: Arrhythmia
  5. OLMESARTAN [Suspect]
     Active Substance: OLMESARTAN
     Indication: Hypertension
     Route: 048

REACTIONS (2)
  - Cardiogenic shock [Fatal]
  - Puncture site haemorrhage [Fatal]

NARRATIVE: CASE EVENT DATE: 20210819
